FAERS Safety Report 23063032 (Version 4)
Quarter: 2023Q4

REPORT INFORMATION
  Report Type: Report from Study
  Country: GT (occurrence: GT)
  Receive Date: 20231013
  Receipt Date: 20231120
  Transmission Date: 20240109
  Serious: Yes (Disabling)
  Sender: FDA-Public Use
  Company Number: GT-002147023-NVSC2023GT200742

PATIENT
  Age: 67 Year
  Sex: Female

DRUGS (4)
  1. KISQALI [Suspect]
     Active Substance: RIBOCICLIB
     Indication: Breast cancer
     Dosage: 200 MG, TID (600 MG) (1 TABLET WITH BREAKFAST, 1 AFTER LUNCH, AND 1 WITH DINNER)
     Route: 048
     Dates: start: 20230830
  2. KISQALI [Suspect]
     Active Substance: RIBOCICLIB
     Dosage: 600 MG, QD
     Route: 048
     Dates: start: 20230831
  3. ANASTROZOLE [Suspect]
     Active Substance: ANASTROZOLE
     Indication: Fluid retention
     Dosage: UNK
     Route: 065
  4. FUROSEMIDE [Concomitant]
     Active Substance: FUROSEMIDE
     Indication: Fluid retention
     Dosage: UNK
     Route: 065

REACTIONS (18)
  - Gait inability [Unknown]
  - Muscular weakness [Unknown]
  - Respiratory disorder [Recovering/Resolving]
  - Malaise [Not Recovered/Not Resolved]
  - Hypersensitivity [Recovering/Resolving]
  - Abdominal discomfort [Unknown]
  - Rash [Unknown]
  - Fatigue [Recovering/Resolving]
  - Cough [Unknown]
  - Headache [Unknown]
  - Chest pain [Unknown]
  - Inappropriate schedule of product administration [Unknown]
  - Product use issue [Unknown]
  - Incorrect dose administered [Unknown]
  - Decreased appetite [Unknown]
  - Urticaria [Unknown]
  - Pruritus [Recovering/Resolving]
  - Ageusia [Unknown]

NARRATIVE: CASE EVENT DATE: 20230830
